FAERS Safety Report 4448362-3 (Version None)
Quarter: 2004Q3

REPORT INFORMATION
  Report Type: 
  Country: None (occurrence: None)
  Receive Date: 20040910
  Receipt Date: 20040910
  Transmission Date: 20050211
  Serious: Yes (Life-Threatening, Hospitalization)
  Sender: FDA-Public Use
  Company Number: None

PATIENT
  Age: 62 Year
  Sex: Female
  Weight: 84.8226 kg

DRUGS (11)
  1. PHENYTOIN [Suspect]
     Indication: CONVULSION
     Dosage: 100 MG TID INTRAVENOUS
     Route: 042
     Dates: start: 20040601, end: 20040907
  2. PHENYTOIN [Suspect]
     Indication: PROPHYLAXIS
     Dosage: 100 MG TID INTRAVENOUS
     Route: 042
     Dates: start: 20040601, end: 20040907
  3. TEMODAR [Concomitant]
  4. COZAAR [Concomitant]
  5. SINGULAIR [Concomitant]
  6. ADVAIR DISKUS 100/50 [Concomitant]
  7. NEXIUM [Concomitant]
  8. LORTAB [Concomitant]
  9. SPRIVA [Concomitant]
  10. TYLENOL [Concomitant]
  11. LEVOTHYROXINE SODIUM [Concomitant]

REACTIONS (1)
  - STEVENS-JOHNSON SYNDROME [None]
